FAERS Safety Report 6410297-4 (Version None)
Quarter: 2009Q4

REPORT INFORMATION
  Report Type: 
  Country: None (occurrence: None)
  Receive Date: 20091022
  Receipt Date: 20091016
  Transmission Date: 20100525
  Serious: Yes (Other)
  Sender: FDA-Public Use
  Company Number: B0598750A

PATIENT
  Age: 63 Year
  Sex: Female

DRUGS (2)
  1. VALTREX [Suspect]
     Indication: DRUG USE FOR UNKNOWN INDICATION
     Route: 048
  2. VALTREX [Suspect]
     Route: 048

REACTIONS (5)
  - CHILLS [None]
  - DIARRHOEA [None]
  - DIZZINESS [None]
  - LOSS OF CONSCIOUSNESS [None]
  - PYREXIA [None]
